FAERS Safety Report 4800172-0 (Version None)
Quarter: 2005Q4

REPORT INFORMATION
  Report Type: 
  Country: None (occurrence: None)
  Receive Date: 20051017
  Receipt Date: 20051005
  Transmission Date: 20060501
  Serious: Yes (Hospitalization)
  Sender: FDA-Public Use
  Company Number: US-KINGPHARMUSA00001-K200501318

PATIENT
  Age: 73 Year
  Sex: Female

DRUGS (20)
  1. ALTACE [Suspect]
     Dosage: 10 MG, QD
     Route: 048
  2. ALTACE [Suspect]
     Route: 048
  3. STEMETIL ^AVENTIS PHARMA^ [Concomitant]
     Dosage: 12.5 MG, QD
     Route: 030
     Dates: start: 20050731
  4. BUMETANIDE [Suspect]
     Dosage: 1.5 MG, QD
     Route: 048
  5. DIFENE [Suspect]
     Dosage: 100 MG, QD
     Route: 048
  6. FLOXAPEN [Suspect]
     Dosage: 4 G, QD
     Route: 048
     Dates: start: 20050722, end: 20050722
  7. FLOXAPEN [Suspect]
     Dosage: 4 G, QD
     Route: 042
     Dates: start: 20050723, end: 20050730
  8. FLOXAPEN [Suspect]
     Dosage: 4 G, QD
     Route: 048
     Dates: start: 20050730, end: 20050730
  9. FUCIDINE CAP [Suspect]
     Dosage: 1,500 MG, QD
     Route: 048
     Dates: start: 20050723
  10. LANOXIN [Suspect]
     Dosage: 250 MG, QD
  11. LANOXIN [Suspect]
     Dosage: UNK, UNK
  12. WARFANT [Suspect]
     Dosage: 5 MG, QD
  13. WARFANT [Suspect]
     Dosage: 5 MG, QD
  14. CARDURA XL [Concomitant]
     Dosage: 8 MG, QD
     Route: 048
  15. ELTROXIN ^GLAXO^ [Concomitant]
     Dosage: 50 UG, QD
     Route: 048
  16. PROTIUM [Concomitant]
     Dosage: 40 MG, QD
     Route: 048
  17. LIPOSTAT 10% [Concomitant]
     Dosage: 20 MG, QD
     Route: 048
  18. EMCOR [Concomitant]
     Dosage: 10 MG, QD
     Route: 048
  19. MOTILIUM [Concomitant]
     Dosage: 20 MG, QD
     Route: 048
     Dates: start: 20050729
  20. ZOFRAN [Concomitant]
     Dosage: 8 MG, QD
     Route: 048
     Dates: start: 20050729, end: 20050731

REACTIONS (6)
  - DIALYSIS [None]
  - DRUG INTERACTION [None]
  - INTERNATIONAL NORMALISED RATIO INCREASED [None]
  - RENAL IMPAIRMENT [None]
  - RENAL TUBULAR NECROSIS [None]
  - THERAPEUTIC AGENT TOXICITY [None]
